FAERS Safety Report 4593959-3 (Version None)
Quarter: 2005Q1

REPORT INFORMATION
  Report Type: 
  Country: None (occurrence: None)
  Receive Date: 20050301
  Receipt Date: 20050203
  Transmission Date: 20050727
  Serious: Yes (Death, Hospitalization)
  Sender: FDA-Public Use
  Company Number: AU-MERCK-0502AUS00015

PATIENT
  Age: 71 Year
  Sex: Male

DRUGS (6)
  1. ZOCOR [Suspect]
     Indication: HYPERCHOLESTEROLAEMIA
     Route: 048
     Dates: start: 19930101, end: 20050120
  2. CYPROTERONE ACETATE [Suspect]
     Indication: PROSTATE CANCER
     Route: 065
     Dates: start: 20041101, end: 20050101
  3. GOSERELIN [Concomitant]
     Indication: PROSTATE CANCER
     Route: 065
     Dates: start: 20041101
  4. DILTIAZEM HYDROCHLORIDE [Concomitant]
     Route: 065
  5. ATENOLOL [Concomitant]
     Route: 065
  6. ASPIRIN [Concomitant]
     Route: 065

REACTIONS (5)
  - DRUG INTERACTION [None]
  - HEPATIC FAILURE [None]
  - HEPATITIS [None]
  - PROSTATE CANCER [None]
  - RHABDOMYOLYSIS [None]
